FAERS Safety Report 4578775-0 (Version None)
Quarter: 2005Q1

REPORT INFORMATION
  Report Type: 
  Country: None (occurrence: None)
  Receive Date: 20050207
  Receipt Date: 20050207
  Transmission Date: 20050727
  Serious: Yes (Other)
  Sender: FDA-Public Use
  Company Number: None

PATIENT
  Age: 56 Year
  Sex: Female
  Weight: 72.5755 kg

DRUGS (3)
  1. CLINDAMYCIN CAPSULES 300 MG [Suspect]
     Indication: SIALOADENITIS
     Dosage: 300 MG X 1 DOSE
     Dates: start: 20050131
  2. TAMOXIFEN CITRATE [Concomitant]
  3. VITAMIN C [Concomitant]

REACTIONS (7)
  - ABDOMINAL DISTENSION [None]
  - ABDOMINAL PAIN [None]
  - DIARRHOEA [None]
  - OEDEMA MUCOSAL [None]
  - SKIN EXFOLIATION [None]
  - SWELLING FACE [None]
  - TONGUE DISORDER [None]
